FAERS Safety Report 18347162 (Version 1)
Quarter: 2020Q4

REPORT INFORMATION
  Report Type: Spontaneous
  Country: CA (occurrence: CA)
  Receive Date: 20201006
  Receipt Date: 20201006
  Transmission Date: 20210114
  Serious: Yes (Hospitalization, Other)
  Sender: FDA-Public Use
  Company Number: CA-JNJFOC-20191017060

PATIENT
  Age: 64 Year
  Sex: Female

DRUGS (41)
  1. APO-CAL [Suspect]
     Active Substance: CALCIUM CARBONATE
     Route: 065
  2. APO-ZOPICLONE [Suspect]
     Active Substance: ZOPICLONE
     Route: 048
  3. BIFIDOBACTERIUM BIFIDUM W/LACTOBACI/01422101/ [Suspect]
     Active Substance: DIETARY SUPPLEMENT\PROBIOTICS
  4. BIFIDOBACTERIUM BIFIDUM W/LACTOBACI/01422101/ [Suspect]
     Active Substance: DIETARY SUPPLEMENT\PROBIOTICS
  5. DEXPANTHENOL. [Suspect]
     Active Substance: DEXPANTHENOL
  6. DULOXETINE HYDROCHLORIDE. [Suspect]
     Active Substance: DULOXETINE HYDROCHLORIDE
     Route: 065
  7. FUROSEMIDE. [Suspect]
     Active Substance: FUROSEMIDE
  8. SULFAMETHOXAZOLE [Suspect]
     Active Substance: SULFAMETHOXAZOLE
  9. CYANOCOBALAMIN. [Suspect]
     Active Substance: CYANOCOBALAMIN
     Route: 065
  10. ALENDRONATE SODIUM. [Suspect]
     Active Substance: ALENDRONATE SODIUM
     Route: 065
  11. LYRICA [Suspect]
     Active Substance: PREGABALIN
  12. TETANUS IMMUNE GLOBULIN (HUMAN) [Suspect]
     Active Substance: HUMAN CLOSTRIDIUM TETANI TOXOID IMMUNE GLOBULIN
  13. WARFARIN [Suspect]
     Active Substance: WARFARIN
  14. CALCIUM CARBONATE. [Suspect]
     Active Substance: CALCIUM CARBONATE
  15. VITAMIN C [Suspect]
     Active Substance: ASCORBIC ACID
  16. ATIVAN [Suspect]
     Active Substance: LORAZEPAM
     Route: 065
  17. CYMBALTA [Suspect]
     Active Substance: DULOXETINE HYDROCHLORIDE
     Route: 065
  18. DOCOSAHEXAENOIC ACID + EICOSAPENTAENOIC ACID [Suspect]
     Active Substance: DOCONEXENT\ICOSAPENT
  19. DULOXETINE HYDROCHLORIDE. [Suspect]
     Active Substance: DULOXETINE HYDROCHLORIDE
     Route: 065
  20. NICOTINAMIDE [Suspect]
     Active Substance: NIACINAMIDE
  21. LORATADINE. [Suspect]
     Active Substance: LORATADINE
     Route: 065
  22. AMINOBENZOIC ACID [Suspect]
     Active Substance: AMINOBENZOIC ACID
     Route: 065
  23. APO-BACLOFEN [Suspect]
     Active Substance: BACLOFEN
     Route: 048
  24. TIZANIDINE HYDROCHLORIDE. [Suspect]
     Active Substance: TIZANIDINE HYDROCHLORIDE
  25. ZOPICLONE [Suspect]
     Active Substance: ZOPICLONE
     Route: 065
  26. MOMETASONE FUROATE. [Suspect]
     Active Substance: MOMETASONE FUROATE
  27. JURNISTA [Suspect]
     Active Substance: HYDROMORPHONE HYDROCHLORIDE
     Indication: PRODUCT USED FOR UNKNOWN INDICATION
     Route: 048
  28. CYMBALTA [Suspect]
     Active Substance: DULOXETINE HYDROCHLORIDE
     Route: 065
  29. DOCOSAHEXAENOIC ACID [Suspect]
     Active Substance: DOCONEXENT
  30. DOCUSATE SODIUM. [Suspect]
     Active Substance: DOCUSATE SODIUM
  31. ERGOCALCIFEROL. [Suspect]
     Active Substance: ERGOCALCIFEROL
  32. NASONEX [Suspect]
     Active Substance: MOMETASONE FUROATE
  33. PREDNISONE. [Suspect]
     Active Substance: PREDNISONE
  34. ZANTAC [Suspect]
     Active Substance: RANITIDINE HYDROCHLORIDE
  35. ASCORBIC ACID. [Suspect]
     Active Substance: ASCORBIC ACID
     Route: 065
  36. GUAIFENESIN W/SULFAMETHOXAZOLE/TRIMETHOPRIM [Suspect]
     Active Substance: GUAIFENESIN\SULFAMETHOXAZOLE\TRIMETHOPRIM
  37. IMODIUM [Suspect]
     Active Substance: LOPERAMIDE HYDROCHLORIDE
     Indication: PRODUCT USED FOR UNKNOWN INDICATION
     Route: 065
  38. MYCOPHENOLATE MOFETIL. [Suspect]
     Active Substance: MYCOPHENOLATE MOFETIL
  39. NORTRIPTYLINE HYDROCHLORIDE. [Suspect]
     Active Substance: NORTRIPTYLINE HYDROCHLORIDE
  40. NOVO-HYDRAZIDE [Suspect]
     Active Substance: HYDROCHLOROTHIAZIDE
     Route: 065
  41. POTASSIUM CHLORIDE. [Suspect]
     Active Substance: POTASSIUM CHLORIDE

REACTIONS (4)
  - Gastrooesophageal reflux disease [Unknown]
  - Coma [Unknown]
  - Pneumonia aspiration [Unknown]
  - Somnolence [Unknown]
